FAERS Safety Report 5844070-2 (Version None)
Quarter: 2008Q3

REPORT INFORMATION
  Report Type: 
  Country: None (occurrence: None)
  Receive Date: 20080813
  Receipt Date: 20080801
  Transmission Date: 20090109
  Serious: Yes (Hospitalization)
  Sender: FDA-Public Use
  Company Number: PHHO2008US04058

PATIENT
  Sex: Female
  Weight: 77.1 kg

DRUGS (3)
  1. DIOVAN T30230+CAPS+HY [Suspect]
     Indication: ESSENTIAL HYPERTENSION
     Dosage: 80MG
     Route: 048
     Dates: start: 20080123, end: 20080323
  2. ALBUTEROL [Concomitant]
     Dates: start: 20080205
  3. CLARITIN [Concomitant]
     Dates: start: 20080205

REACTIONS (5)
  - ASTHMA [None]
  - BLOOD PRESSURE INADEQUATELY CONTROLLED [None]
  - BRONCHITIS [None]
  - DYSPNOEA [None]
  - WHEEZING [None]
